FAERS Safety Report 9174213 (Version 1)
Quarter: 2013Q1

REPORT INFORMATION
  Report Type: Spontaneous
  Country: US (occurrence: US)
  Receive Date: 20130320
  Receipt Date: 20130320
  Transmission Date: 20140127
  Serious: No
  Sender: FDA-Public Use
  Company Number: US-MYLANLABS-2012S1011647

PATIENT
  Sex: Female

DRUGS (2)
  1. SOTALOL HYDROCHLORIDE TABLETS (AF) [Suspect]
     Indication: ATRIAL FIBRILLATION
     Route: 048
     Dates: start: 20120528
  2. COUMADIN [Concomitant]

REACTIONS (2)
  - Middle insomnia [Not Recovered/Not Resolved]
  - Abnormal dreams [Not Recovered/Not Resolved]
